FAERS Safety Report 5330553-0 (Version None)
Quarter: 2007Q2

REPORT INFORMATION
  Report Type: 
  Country: None (occurrence: None)
  Receive Date: 20070521
  Receipt Date: 20070518
  Transmission Date: 20071010
  Serious: Yes (Death)
  Sender: FDA-Public Use
  Company Number: JP-GENENTECH-227391

PATIENT
  Age: 76 Year
  Sex: Male

DRUGS (6)
  1. ACTIVASE [Suspect]
     Indication: CEREBRAL ARTERY EMBOLISM
     Dosage: 33.1 ML, SINGLE
     Route: 042
     Dates: start: 20060702, end: 20060703
  2. PERDIPINE [Concomitant]
     Indication: DRUG USE FOR UNKNOWN INDICATION
     Dates: start: 20060702, end: 20060704
  3. GASTER [Concomitant]
     Indication: DRUG USE FOR UNKNOWN INDICATION
     Dates: start: 20060702, end: 20060704
  4. HORIZON [Concomitant]
     Indication: DRUG USE FOR UNKNOWN INDICATION
     Dates: start: 20060702
  5. RADICUT [Concomitant]
     Indication: DRUG USE FOR UNKNOWN INDICATION
     Dates: start: 20060703, end: 20060704
  6. GLYCEOL [Concomitant]
     Indication: DRUG USE FOR UNKNOWN INDICATION
     Dates: start: 20060703, end: 20060704

REACTIONS (1)
  - RESPIRATORY FAILURE [None]
